FAERS Safety Report 9903717 (Version 1)
Quarter: 2014Q1

REPORT INFORMATION
  Report Type: Spontaneous
  Country: GB (occurrence: GB)
  Receive Date: 20140217
  Receipt Date: 20140217
  Transmission Date: 20141002
  Serious: Yes (Other)
  Sender: FDA-Public Use
  Company Number: GB-ROCHE-1349508

PATIENT
  Sex: 0

DRUGS (1)
  1. CYMEVENE [Suspect]
     Indication: CYTOMEGALOVIRUS COLITIS
     Route: 042

REACTIONS (1)
  - Cytomegalovirus colitis [Unknown]
